FAERS Safety Report 9868957 (Version 3)
Quarter: 2014Q1

REPORT INFORMATION
  Report Type: Spontaneous
  Country: JP (occurrence: JP)
  Receive Date: 20140205
  Receipt Date: 20140310
  Transmission Date: 20141002
  Serious: Yes (Other)
  Sender: FDA-Public Use
  Company Number: JP-ROCHE-1334615

PATIENT
  Age: 82 Year
  Sex: Female
  Weight: 42 kg

DRUGS (10)
  1. MIRCERA [Suspect]
     Indication: NEPHROGENIC ANAEMIA
     Route: 042
     Dates: start: 20130907, end: 20131026
  2. MIRCERA [Suspect]
     Indication: NEPHROGENIC ANAEMIA
     Route: 042
     Dates: start: 20131026, end: 20131123
  3. PLAVIX [Suspect]
     Indication: PRODUCT USED FOR UNKNOWN INDICATION
     Route: 048
  4. TAKEPRON [Suspect]
     Indication: PRODUCT USED FOR UNKNOWN INDICATION
     Route: 048
  5. THYRADIN-S [Concomitant]
     Route: 048
  6. ARICEPT [Concomitant]
     Dosage: DRUG REPORTED AS ARICEPT D
     Route: 048
  7. XYZAL [Concomitant]
     Route: 048
  8. ALFAROL [Concomitant]
     Route: 048
  9. SIGMART [Concomitant]
     Route: 048
  10. MAINTATE [Concomitant]
     Route: 048

REACTIONS (1)
  - Haemoglobin decreased [Recovered/Resolved]
